FAERS Safety Report 5704056-5 (Version None)
Quarter: 2008Q2

REPORT INFORMATION
  Report Type: 
  Country: None (occurrence: None)
  Receive Date: 20080414
  Receipt Date: 20080401
  Transmission Date: 20081010
  Serious: Yes (Hospitalization, Other)
  Sender: FDA-Public Use
  Company Number: US-ROCHE-521756

PATIENT
  Sex: Female
  Weight: 47.6 kg

DRUGS (11)
  1. ACCUTANE [Suspect]
     Route: 048
     Dates: start: 19971103, end: 19971229
  2. ACCUTANE [Suspect]
     Dosage: THE PATIENT WAS PRESCRIBED ACCUTANE 40 MG #30 1 OD WITH FOOD ALONG WITH 10 MG I OD WITH FOOD.
     Route: 048
     Dates: start: 19971122
  3. RETIN-A [Concomitant]
     Indication: ACNE
  4. TETRACYCLIN [Concomitant]
     Indication: ACNE
  5. FAMVIR [Concomitant]
     Indication: ACNE
  6. ACLOVATE [Concomitant]
     Indication: ACNE
  7. BENZAMYCIN [Concomitant]
     Indication: ACNE
  8. BENZAMYCIN [Concomitant]
  9. RANITIDINE [Concomitant]
     Indication: ACNE
  10. RANITIDINE [Concomitant]
  11. NUTRACORT [Concomitant]
     Indication: ACNE

REACTIONS (21)
  - ANAEMIA [None]
  - ANAL ABSCESS [None]
  - ANAL FISTULA [None]
  - ANXIETY [None]
  - ARTHRALGIA [None]
  - ASCITES [None]
  - COLITIS [None]
  - COLITIS ULCERATIVE [None]
  - CROHN'S DISEASE [None]
  - DELUSION [None]
  - DEPRESSION [None]
  - FEMALE GENITAL TRACT FISTULA [None]
  - FISTULA [None]
  - GASTROINTESTINAL DISORDER [None]
  - INFLAMMATORY BOWEL DISEASE [None]
  - OSTEOPENIA [None]
  - PLEURAL EFFUSION [None]
  - SEROSITIS [None]
  - SPLENOMEGALY [None]
  - SUICIDAL IDEATION [None]
  - VISION BLURRED [None]
